FAERS Safety Report 11451399 (Version 1)
Quarter: 2015Q3

REPORT INFORMATION
  Report Type: Spontaneous
  Country: US (occurrence: None)
  Receive Date: 20150902
  Receipt Date: 20150902
  Transmission Date: 20151125
  Serious: Yes (Other)
  Sender: FDA-Public Use
  Company Number: None

PATIENT
  Age: 57 Year
  Sex: Female

DRUGS (11)
  1. ZONEGRAM [Concomitant]
  2. TIZANTIDINE [Concomitant]
  3. LEXAPRO [Concomitant]
     Active Substance: ESCITALOPRAM OXALATE
  4. ZRYTEC [Concomitant]
  5. HARVONI [Suspect]
     Active Substance: LEDIPASVIR\SOFOSBUVIR
     Indication: HEPATITIS C
     Dosage: 90MG-400MG
     Route: 048
     Dates: start: 20150519
  6. NEXIUM [Concomitant]
     Active Substance: ESOMEPRAZOLE MAGNESIUM
  7. BOOST [Concomitant]
  8. BIOTIN [Concomitant]
     Active Substance: BIOTIN
  9. KEPPRA [Concomitant]
     Active Substance: LEVETIRACETAM
  10. RELPAX [Concomitant]
     Active Substance: ELETRIPTAN HYDROBROMIDE
  11. COUMPOUNNDED HORMONES [Concomitant]

REACTIONS (6)
  - Diarrhoea [None]
  - Blood pressure increased [None]
  - Weight decreased [None]
  - Decreased appetite [None]
  - Dehydration [None]
  - Abdominal pain [None]

NARRATIVE: CASE EVENT DATE: 20150612
